FAERS Safety Report 9490631 (Version 7)
Quarter: 2014Q2

REPORT INFORMATION
  Report Type: Report from Study
  Country: AU (occurrence: AU)
  Receive Date: 20130830
  Receipt Date: 20140421
  Transmission Date: 20141212
  Serious: Yes (Other)
  Sender: FDA-Public Use
  Company Number: PHHY2013AU089241

PATIENT
  Sex: Female

DRUGS (9)
  1. SANDOSTATIN LAR [Suspect]
     Indication: ACROMEGALY
     Dosage: 30 MG, QMO
     Route: 030
  2. SANDOSTATIN LAR [Suspect]
     Dosage: 60 MG, QMO
     Route: 030
  3. SANDOSTATIN LAR [Suspect]
     Dosage: 30 MG, PER MONTH
     Route: 030
  4. SANDOSTATIN LAR [Suspect]
     Dosage: 30 MG, 4 WEEKLY
     Route: 030
  5. SANDOSTATIN LAR [Suspect]
     Dosage: 60 MG, UNK
  6. CABERGOLINE [Concomitant]
     Indication: ACROMEGALY
     Dosage: 2 MG, UNK
     Route: 048
     Dates: start: 2011
  7. THYROXINE [Concomitant]
     Indication: AUTOIMMUNE THYROIDITIS
     Dosage: 100 MG, UNK
     Route: 048
     Dates: start: 2010
  8. ACLASTA [Concomitant]
     Indication: FIBROUS DYSPLASIA OF BONE
     Dosage: 5 MG, UNK
     Route: 042
     Dates: start: 2010
  9. METFORMIN [Concomitant]
     Indication: DIABETES MELLITUS
     Dosage: 1 G, BID
     Route: 048
     Dates: start: 2010

REACTIONS (3)
  - Neoplasm [Unknown]
  - Needle issue [Unknown]
  - Therapeutic response decreased [Unknown]
